FAERS Safety Report 10063753 (Version 2)
Quarter: 2014Q2

REPORT INFORMATION
  Report Type: Spontaneous
  Country: US (occurrence: US)
  Receive Date: 20140408
  Receipt Date: 20140610
  Transmission Date: 20141212
  Serious: Yes (Hospitalization)
  Sender: FDA-Public Use
  Company Number: US-ROCHE-1378966

PATIENT
  Age: 93 Year
  Sex: Female

DRUGS (6)
  1. RANIBIZUMAB [Suspect]
     Indication: PRODUCT USED FOR UNKNOWN INDICATION
     Route: 050
  2. LEVETIRACETAM [Suspect]
     Indication: EPILEPSY
     Route: 065
  3. AMLODIPINE [Concomitant]
  4. LATANOPROST [Concomitant]
  5. PILOCARPINE [Concomitant]
  6. BETAXOLOL EYE DROPS [Concomitant]

REACTIONS (3)
  - Delirium [Not Recovered/Not Resolved]
  - Fall [Unknown]
  - Sedation [Unknown]
